FAERS Safety Report 11540255 (Version 2)
Quarter: 2015Q4

REPORT INFORMATION
  Report Type: Spontaneous
  Country: DE (occurrence: DE)
  Receive Date: 20150923
  Receipt Date: 20151104
  Transmission Date: 20160304
  Serious: Yes (Hospitalization, Other)
  Sender: FDA-Public Use
  Company Number: DE-BRISTOL-MYERS SQUIBB COMPANY-BMS-2015-061842

PATIENT
  Sex: Male

DRUGS (7)
  1. LITALIR [Concomitant]
     Active Substance: HYDROXYUREA
     Indication: ACUTE MYELOID LEUKAEMIA
     Route: 065
  2. VEPESID [Suspect]
     Active Substance: ETOPOSIDE
     Indication: ACUTE MYELOID LEUKAEMIA
  3. VEPESID [Suspect]
     Active Substance: ETOPOSIDE
     Indication: CHRONIC MYELOMONOCYTIC LEUKAEMIA
     Dosage: 100 MG, 2 TIMES/WK
     Route: 065
     Dates: start: 201407
  4. VEPESID [Suspect]
     Active Substance: ETOPOSIDE
     Indication: CHRONIC MYELOID LEUKAEMIA
  5. ASPIRIN. [Concomitant]
     Active Substance: ASPIRIN
     Indication: PRODUCT USED FOR UNKNOWN INDICATION
     Route: 065
  6. LITALIR [Concomitant]
     Active Substance: HYDROXYUREA
     Indication: ACUTE MYELOID LEUKAEMIA
  7. ALLOPURINOL. [Concomitant]
     Active Substance: ALLOPURINOL
     Indication: PRODUCT USED FOR UNKNOWN INDICATION
     Route: 065

REACTIONS (7)
  - Diarrhoea [Unknown]
  - Stomatitis [Unknown]
  - Decreased appetite [Unknown]
  - Acute myeloid leukaemia [Unknown]
  - Off label use [Unknown]
  - Blood alkaline phosphatase increased [Unknown]
  - Weight decreased [Unknown]
